FAERS Safety Report 7760327-2 (Version None)
Quarter: 2011Q3

REPORT INFORMATION
  Report Type: 
  Country: None (occurrence: None)
  Receive Date: 20110919
  Receipt Date: 20110906
  Transmission Date: 20111222
  Serious: Yes (Death, Life-Threatening)
  Sender: FDA-Public Use
  Company Number: FR-MYLANLABS-2011S1018408

PATIENT
  Age: 53 Year
  Sex: Male

DRUGS (5)
  1. VANCOMYCIN [Suspect]
     Indication: PRODUCT USED FOR UNKNOWN INDICATION
     Route: 042
     Dates: start: 20110803, end: 20110804
  2. SUFENTANIL CITRATE [Suspect]
     Indication: ANAESTHESIA
     Route: 042
     Dates: start: 20110803, end: 20110804
  3. MIDAZOLAM HCL [Suspect]
     Indication: ANAESTHESIA
     Route: 042
     Dates: start: 20110803, end: 20110804
  4. NORADRENALIN /00127502/ [Concomitant]
  5. NIMBEX [Concomitant]

REACTIONS (4)
  - ANGIOEDEMA [None]
  - BRADYCARDIA [None]
  - MULTI-ORGAN FAILURE [None]
  - CIRCULATORY COLLAPSE [None]
